FAERS Safety Report 21350063 (Version 1)
Quarter: 2022Q3

REPORT INFORMATION
  Report Type: Spontaneous
  Country: US (occurrence: None)
  Receive Date: 20220917
  Receipt Date: 20220917
  Transmission Date: 20221027
  Serious: Yes (Other)
  Sender: FDA-Public Use
  Company Number: None

PATIENT
  Age: 60 Year
  Sex: Female
  Weight: 85 kg

DRUGS (3)
  1. ACTEMRA [Suspect]
     Active Substance: TOCILIZUMAB
     Indication: Rheumatoid arthritis
     Dosage: FREQUENCY : ONCE;?
     Route: 058
     Dates: start: 20220909, end: 20220915
  2. PREDNISONE [Concomitant]
     Active Substance: PREDNISONE
     Dates: start: 20170208
  3. LEFLUNOMIDE [Concomitant]
     Active Substance: LEFLUNOMIDE
     Dates: start: 20170606

REACTIONS (1)
  - Angioedema [None]

NARRATIVE: CASE EVENT DATE: 20220909
